FAERS Safety Report 15244356 (Version 1)
Quarter: 2018Q3

REPORT INFORMATION
  Report Type: Spontaneous
  Country: US (occurrence: US)
  Receive Date: 20180806
  Receipt Date: 20180806
  Transmission Date: 20181010
  Serious: No
  Sender: FDA-Public Use
  Company Number: US-ABBVIE-18P-163-2362604-00

PATIENT
  Age: 59 Year

DRUGS (2)
  1. MAVYRET [Suspect]
     Active Substance: GLECAPREVIR\PIBRENTASVIR
     Indication: CHRONIC HEPATITIS C
     Route: 048
     Dates: start: 201804
  2. CHLORTALIDONE [Concomitant]
     Active Substance: CHLORTHALIDONE
     Indication: HYPERTENSION

REACTIONS (1)
  - Blood creatinine increased [Not Recovered/Not Resolved]

NARRATIVE: CASE EVENT DATE: 201805
